FAERS Safety Report 16528430 (Version 2)
Quarter: 2019Q3

REPORT INFORMATION
  Report Type: Report from Study
  Country: PL (occurrence: PL)
  Receive Date: 20190703
  Receipt Date: 20190712
  Transmission Date: 20191004
  Serious: Yes (Death, Life-Threatening, Hospitalization)
  Sender: FDA-Public Use
  Company Number: PL-AMREGENT-20191435

PATIENT
  Age: 71 Year
  Sex: Male
  Weight: 110 kg

DRUGS (1)
  1. FERINJECT [Suspect]
     Active Substance: FERRIC CARBOXYMALTOSE
     Dosage: 10 ML
     Route: 040
     Dates: start: 20181210, end: 20181210

REACTIONS (3)
  - Subdural haematoma [Fatal]
  - Cardiac failure [Fatal]
  - Death [Fatal]

NARRATIVE: CASE EVENT DATE: 20190618
